FAERS Safety Report 8542676 (Version 3)
Quarter: 2013Q2

REPORT INFORMATION
  Report Type: Spontaneous
  Country: US (occurrence: US)
  Receive Date: 20120502
  Receipt Date: 20130523
  Transmission Date: 20140414
  Serious: Yes (Hospitalization, Other)
  Sender: FDA-Public Use
  Company Number: US-AMGEN-USASP2012022031

PATIENT
  Age: 53 Year
  Sex: Male

DRUGS (2)
  1. ENBREL [Suspect]
     Indication: ANKYLOSING SPONDYLITIS
     Dosage: 50 MG, WEEKLY
     Dates: start: 20050101
  2. VIAGRA [Concomitant]
     Dosage: UNK

REACTIONS (9)
  - Dehydration [Recovered/Resolved]
  - Blood potassium decreased [Not Recovered/Not Resolved]
  - Fatigue [Unknown]
  - Malaise [Recovered/Resolved]
  - Arthropod bite [Recovered/Resolved]
  - Influenza like illness [Recovered/Resolved]
  - Bacterial infection [Recovered/Resolved]
  - Influenza [Recovered/Resolved]
  - Lyme disease [Recovered/Resolved]
